FAERS Safety Report 19519229 (Version 1)
Quarter: 2021Q3

REPORT INFORMATION
  Report Type: Spontaneous
  Country: US (occurrence: US)
  Receive Date: 20210709
  Receipt Date: 20210709
  Transmission Date: 20211014
  Serious: No
  Sender: FDA-Public Use
  Company Number: None

PATIENT
  Sex: Male

DRUGS (1)
  1. AVONEX [Suspect]
     Active Substance: INTERFERON BETA-1A
     Indication: MULTIPLE SCLEROSIS
     Dosage: ? ON HOLD
     Route: 030
     Dates: start: 20170208

REACTIONS (3)
  - Prostatomegaly [None]
  - Lymphoma [None]
  - Transurethral prostatectomy [None]
